FAERS Safety Report 9633926 (Version 2)
Quarter: 2013Q4

REPORT INFORMATION
  Report Type: Spontaneous
  Country: SE (occurrence: SE)
  Receive Date: 20131021
  Receipt Date: 20131031
  Transmission Date: 20140711
  Serious: Yes (Other)
  Sender: FDA-Public Use
  Company Number: SE-JNJFOC-20131006514

PATIENT
  Sex: Female

DRUGS (6)
  1. CONCERTA [Suspect]
     Indication: ATTENTION DEFICIT/HYPERACTIVITY DISORDER
     Route: 048
     Dates: start: 2013, end: 20131007
  2. CONCERTA [Suspect]
     Indication: ATTENTION DEFICIT/HYPERACTIVITY DISORDER
     Route: 048
  3. SAROTEN [Concomitant]
     Indication: SLEEP DISORDER
     Route: 065
  4. SAROTEN [Concomitant]
     Indication: SLEEP DISORDER
     Route: 065
  5. SAROTEN [Concomitant]
     Indication: PAIN
     Route: 065
  6. SAROTEN [Concomitant]
     Indication: PAIN
     Route: 065

REACTIONS (7)
  - Delusion [Recovering/Resolving]
  - Hallucination, tactile [Recovering/Resolving]
  - Libido increased [Recovering/Resolving]
  - Anger [Recovering/Resolving]
  - Delusion [Recovering/Resolving]
  - Affect lability [Recovering/Resolving]
  - Hallucination, auditory [Recovering/Resolving]
